FAERS Safety Report 23186763 (Version 1)
Quarter: 2023Q4

REPORT INFORMATION
  Report Type: Spontaneous
  Country: US (occurrence: None)
  Receive Date: 20231115
  Receipt Date: 20231115
  Transmission Date: 20240109
  Serious: Yes (unspecified)
  Sender: FDA-Public Use
  Company Number: None

PATIENT
  Age: 47 Year
  Sex: Female
  Weight: 53.55 kg

DRUGS (1)
  1. .DELTA.9-TETRAHYDROCANNABINOL ACETATE\HERBALS [Suspect]
     Active Substance: .DELTA.9-TETRAHYDROCANNABINOL ACETATE\HERBALS
     Indication: Alcohol use
     Dates: start: 20231101, end: 20231101

REACTIONS (5)
  - Tremor [None]
  - Gait disturbance [None]
  - Psychotic disorder [None]
  - Near death experience [None]
  - Loss of consciousness [None]

NARRATIVE: CASE EVENT DATE: 20231101
